FAERS Safety Report 15463198 (Version 2)
Quarter: 2025Q3

REPORT INFORMATION
  Report Type: Spontaneous
  Country: EU (occurrence: EU)
  Receive Date: 20181004
  Receipt Date: 20250703
  Transmission Date: 20251020
  Serious: Yes (Hospitalization, Other)
  Sender: AUROBINDO
  Company Number: EU-AUROBINDO-AUR-APL-2018-047702

PATIENT
  Age: 23 Year
  Sex: Male

DRUGS (2)
  1. QUETIAPINE [Suspect]
     Active Substance: QUETIAPINE
     Indication: Post-traumatic stress disorder
     Route: 048
  2. QUETIAPINE [Suspect]
     Active Substance: QUETIAPINE
     Route: 048

REACTIONS (9)
  - Intentional overdose [Unknown]
  - Electrocardiogram ST segment depression [Unknown]
  - Cardiac murmur [Unknown]
  - Urinary retention [Unknown]
  - Miosis [Unknown]
  - Abdominal pain [Unknown]
  - Delirium [Recovering/Resolving]
  - Sinus tachycardia [Unknown]
  - Poisoning [Unknown]
